FAERS Safety Report 17388619 (Version 1)
Quarter: 2020Q1

REPORT INFORMATION
  Report Type: Spontaneous
  Country: US (occurrence: US)
  Receive Date: 20200206
  Receipt Date: 20200206
  Transmission Date: 20200409
  Serious: No
  Sender: FDA-Public Use
  Company Number: US-ELI_LILLY_AND_COMPANY-US202002001566

PATIENT
  Age: 19 Year
  Sex: Female

DRUGS (2)
  1. TALTZ [Suspect]
     Active Substance: IXEKIZUMAB
     Indication: PRODUCT USED FOR UNKNOWN INDICATION
     Dosage: UNK UNK, UNKNOWN
     Route: 065
     Dates: start: 20200103
  2. TALTZ [Suspect]
     Active Substance: IXEKIZUMAB
     Dosage: UNK UNK, UNKNOWN
     Route: 065
     Dates: start: 20200122

REACTIONS (10)
  - Injection site warmth [Unknown]
  - Injection site erythema [Unknown]
  - Injection site discolouration [Unknown]
  - Inappropriate schedule of product administration [Unknown]
  - Injection site pain [Unknown]
  - Incorrect dose administered [Unknown]
  - Injection site reaction [Unknown]
  - Injection site mass [Unknown]
  - Injection site swelling [Unknown]
  - Sleep disorder due to general medical condition, insomnia type [Unknown]

NARRATIVE: CASE EVENT DATE: 202001
